FAERS Safety Report 13445939 (Version 1)
Quarter: 2017Q2

REPORT INFORMATION
  Report Type: Spontaneous
  Country: US (occurrence: US)
  Receive Date: 20170417
  Receipt Date: 20170417
  Transmission Date: 20170830
  Serious: No
  Sender: FDA-Public Use
  Company Number: US-BION-005973

PATIENT
  Age: 43 Year
  Sex: Male
  Weight: 91 kg

DRUGS (3)
  1. ALEVE [Suspect]
     Active Substance: NAPROXEN SODIUM
     Indication: PAIN
     Route: 048
     Dates: start: 20170131, end: 20170131
  2. DIGEST [Concomitant]
  3. CENTRIM [Concomitant]

REACTIONS (1)
  - Drug screen false positive [Unknown]
